FAERS Safety Report 5131387-2 (Version None)
Quarter: 2006Q4

REPORT INFORMATION
  Report Type: 
  Country: None (occurrence: None)
  Receive Date: 20061020
  Receipt Date: 20061013
  Transmission Date: 20070319
  Serious: Yes (Hospitalization)
  Sender: FDA-Public Use
  Company Number: US-GLAXOSMITHKLINE-A0623526A

PATIENT
  Age: 66 Year
  Sex: Male

DRUGS (6)
  1. COREG [Suspect]
     Indication: HYPERTENSION
     Dosage: 12.5MG TWICE PER DAY
     Route: 048
  2. LASIX [Concomitant]
  3. ALLOPURINOL [Concomitant]
  4. COUMADIN [Concomitant]
  5. DIGOXIN [Concomitant]
  6. INSULIN [Concomitant]

REACTIONS (5)
  - BLOOD GLUCOSE FLUCTUATION [None]
  - CARDIAC FAILURE CONGESTIVE [None]
  - DIZZINESS [None]
  - DRY MOUTH [None]
  - PNEUMONIA [None]
